FAERS Safety Report 20146819 (Version 1)
Quarter: 2021Q4

REPORT INFORMATION
  Report Type: Spontaneous
  Country: FR (occurrence: FR)
  Receive Date: 20211203
  Receipt Date: 20211203
  Transmission Date: 20220303
  Serious: Yes (Disabling, Other)
  Sender: FDA-Public Use
  Company Number: FR-ABBVIE-21K-056-4183593-00

PATIENT
  Sex: Male

DRUGS (3)
  1. VALPROATE SODIUM [Suspect]
     Active Substance: VALPROATE SODIUM
     Indication: Product used for unknown indication
     Route: 065
  2. DEPAKOTE [Suspect]
     Active Substance: DIVALPROEX SODIUM
     Indication: Product used for unknown indication
     Route: 065
     Dates: start: 2008
  3. LORMETAZEPAM [Suspect]
     Active Substance: LORMETAZEPAM
     Indication: Product used for unknown indication
     Route: 065

REACTIONS (13)
  - Musculoskeletal disorder [Unknown]
  - Joint range of motion decreased [Unknown]
  - Visual impairment [Unknown]
  - Amnesia [Unknown]
  - Deafness [Unknown]
  - Appetite disorder [Unknown]
  - Cardiac disorder [Unknown]
  - Arthralgia [Unknown]
  - Neck pain [Unknown]
  - Dyspepsia [Unknown]
  - Weight decreased [Unknown]
  - Tension [Unknown]
  - Diarrhoea [Unknown]

NARRATIVE: CASE EVENT DATE: 20200301
